FAERS Safety Report 6301955-0 (Version None)
Quarter: 2009Q3

REPORT INFORMATION
  Report Type: 
  Country: None (occurrence: None)
  Receive Date: 20090807
  Receipt Date: 20090728
  Transmission Date: 20100115
  Serious: Yes (Death)
  Sender: FDA-Public Use
  Company Number: US-JNJFOC-20090706838

PATIENT
  Age: 9 Year
  Sex: Male
  Weight: 48 kg

DRUGS (3)
  1. ACETAMINOPHEN [Suspect]
  2. ACETAMINOPHEN [Suspect]
     Indication: PYREXIA
  3. CHLORPHENAMINE W/PARACETAMOL/PSEUDOEPHEDRINE [Suspect]
     Indication: DRUG USE FOR UNKNOWN INDICATION
     Dosage: 30 MG PSEUDOEPHEDRINE/2 MG CHLORPHENIRAMINE/500 MG APAP

REACTIONS (3)
  - DRUG ADMINISTRATION ERROR [None]
  - HEPATOTOXICITY [None]
  - OVERDOSE [None]
